FAERS Safety Report 17373355 (Version 1)
Quarter: 2020Q1

REPORT INFORMATION
  Report Type: Spontaneous
  Country: US (occurrence: US)
  Receive Date: 20200206
  Receipt Date: 20200206
  Transmission Date: 20200409
  Serious: No
  Sender: FDA-Public Use
  Company Number: US-GLENMARK PHARMACEUTICALS-2019GMK042909

PATIENT

DRUGS (4)
  1. INDOMETHACIN CAPSULES USP, 25MG [Suspect]
     Active Substance: INDOMETHACIN
     Indication: PERICARDITIS
  2. COLCHICINE. [Concomitant]
     Active Substance: COLCHICINE
     Indication: DYSPNOEA
     Dosage: 0.6 MG, BID
     Route: 065
  3. INDOMETHACIN CAPSULES USP, 25MG [Suspect]
     Active Substance: INDOMETHACIN
     Indication: DYSPNOEA
     Dosage: 2 DF, TID
     Route: 065
     Dates: start: 201902, end: 20190613
  4. COLCHICINE. [Concomitant]
     Active Substance: COLCHICINE
     Indication: PERICARDITIS

REACTIONS (8)
  - Tremor [Recovered/Resolved]
  - Decreased appetite [Recovered/Resolved]
  - Dyskinesia [Recovered/Resolved]
  - Product use in unapproved indication [Unknown]
  - Product dose omission [Unknown]
  - Fatigue [Recovered/Resolved]
  - Pigmentation disorder [Recovered/Resolved]
  - Dyspnoea [Recovered/Resolved]

NARRATIVE: CASE EVENT DATE: 201902
